FAERS Safety Report 7344882-2 (Version None)
Quarter: 2011Q1

REPORT INFORMATION
  Report Type: 
  Country: None (occurrence: None)
  Receive Date: 20110310
  Receipt Date: 20110307
  Transmission Date: 20110831
  Serious: Yes (Hospitalization, Other)
  Sender: FDA-Public Use
  Company Number: US-PFIZER INC-2010157024

PATIENT
  Sex: Female

DRUGS (11)
  1. HYDROCODONE [Concomitant]
     Indication: BACK PAIN
     Dosage: UNK
     Dates: start: 20050101, end: 20100101
  2. INSULIN GLARGINE [Concomitant]
     Indication: DIABETES MELLITUS
     Dosage: UNK
     Dates: start: 20070101
  3. IBUPROFEN [Concomitant]
     Indication: PAIN
     Dosage: UNK
     Dates: start: 20060101, end: 20100101
  4. METHYLPREDNISOLONE [Concomitant]
     Dosage: UNK
     Dates: start: 20080101, end: 20100101
  5. POTASSIUM CHLORIDE [Concomitant]
     Indication: HYPOKALAEMIA
     Dosage: UNK
     Dates: start: 20060101, end: 20100101
  6. PREMARIN [Concomitant]
     Indication: BLOOD OESTROGEN
     Dosage: UNK
     Dates: start: 20040101, end: 20100101
  7. CHANTIX [Suspect]
     Indication: SMOKING CESSATION THERAPY
     Dosage: STARTER PACKS AND 1 MG CONTINUOUS MONTH PACK
     Route: 048
     Dates: start: 20090201, end: 20090601
  8. INSULIN LISPRO [Concomitant]
     Indication: DIABETES MELLITUS
     Dosage: UNK
     Dates: start: 20070101
  9. METFORMIN [Concomitant]
     Indication: DIABETES MELLITUS
     Dosage: UNK
     Dates: start: 20040101
  10. TRAMADOL [Concomitant]
     Indication: BACK PAIN
     Dosage: UNK
     Dates: start: 20050101, end: 20100101
  11. LYRICA [Concomitant]
     Indication: NEURALGIA
     Dosage: UNK
     Dates: start: 20060101, end: 20100101

REACTIONS (5)
  - SUICIDE ATTEMPT [None]
  - RESPIRATORY FAILURE [None]
  - INTENTIONAL OVERDOSE [None]
  - MULTIPLE INJURIES [None]
  - DEPRESSION [None]
